FAERS Safety Report 9572302 (Version 3)
Quarter: 2013Q4

REPORT INFORMATION
  Report Type: Spontaneous
  Country: ES (occurrence: ES)
  Receive Date: 20131001
  Receipt Date: 20131022
  Transmission Date: 20140711
  Serious: Yes (Hospitalization)
  Sender: FDA-Public Use
  Company Number: ES-PFIZER INC-2013277432

PATIENT
  Age: 69 Year
  Sex: Male

DRUGS (4)
  1. SOMAVERT [Suspect]
     Dosage: 10 MG, 1X/DAY
     Route: 058
     Dates: start: 20130506, end: 20130507
  2. BILASTINE [Suspect]
     Dosage: 20 MG, UNK
     Dates: start: 20130509
  3. LERCADIP [Suspect]
     Indication: HYPERTENSION
     Dosage: 10 MG, 1X/DAY
     Dates: start: 20060407
  4. PRITOR PLUS [Suspect]
     Indication: HYPERTENSION
     Dosage: 80/12.5 MG, 1X/DAY
     Dates: start: 20031219

REACTIONS (3)
  - Extrasystoles [Unknown]
  - Extrasystoles [Unknown]
  - Tachycardia [Unknown]
